FAERS Safety Report 10178443 (Version 1)
Quarter: 2014Q2

REPORT INFORMATION
  Report Type: Other
  Country: GB (occurrence: GB)
  Receive Date: 20140519
  Receipt Date: 20140519
  Transmission Date: 20141212
  Serious: Yes (Other)
  Sender: FDA-Public Use
  Company Number: GB-TAKEDA-2014TEU003979

PATIENT
  Age: 87 Year
  Sex: Female
  Weight: 83 kg

DRUGS (7)
  1. PIOGLITAZONE [Suspect]
     Indication: TYPE 2 DIABETES MELLITUS
     Dosage: 15 MG, UNK
     Route: 048
     Dates: start: 20110322, end: 20140422
  2. AMLODIPINE [Concomitant]
     Dosage: 5 MG, QD
  3. SIMVASTATIN [Concomitant]
     Dosage: 20 MG, QD AT NIGHT
  4. GLICLAZIDE [Concomitant]
     Dosage: 160 MG, BID
  5. LISINOPRIL [Concomitant]
     Dosage: 20 MG, BID
  6. ASPIRIN [Concomitant]
     Dosage: 75 MG, QD
  7. OMEPRAZOLE [Concomitant]
     Dosage: 20 MG, QD

REACTIONS (2)
  - Bladder cancer [Unknown]
  - Haematuria [Unknown]
